FAERS Safety Report 8115701-1 (Version None)
Quarter: 2011Q4

REPORT INFORMATION
  Report Type: 
  Country: None (occurrence: None)
  Receive Date: 20111227
  Receipt Date: 20110830
  Transmission Date: 20120403
  Serious: Yes (Other)
  Sender: FDA-Public Use
  Company Number: PHEH2011US01830

PATIENT
  Age: 40 Year
  Sex: Female

DRUGS (22)
  1. SUMATRIPTAN [Concomitant]
  2. XANAX [Concomitant]
  3. BACLOFEN [Concomitant]
  4. PROVIGIL [Concomitant]
  5. GILENYA [Suspect]
     Indication: RELAPSING-REMITTING MULTIPLE SCLEROSIS
     Dosage: 0.5 MG, QD, ORAL
     Route: 048
     Dates: start: 20110614
  6. LORAZEPAM [Concomitant]
  7. VALACYCLOVIR [Concomitant]
  8. CALCIUM WITH VITAMIN D (CALCIUM PHOSPHATE, CALCIUM SODIUM LACTATE, ERG [Concomitant]
  9. VITAMIN D [Concomitant]
  10. MIRAPEX [Concomitant]
  11. CELEXA [Concomitant]
  12. FAMPRIDINE (FAMPRIDINE) [Concomitant]
  13. SIMVASTATIN [Concomitant]
  14. FAMOTIDINE [Concomitant]
  15. ABILIFY [Concomitant]
  16. FLEXERIL [Concomitant]
  17. GABAPENTIN [Concomitant]
  18. SYNTHROID [Concomitant]
  19. MULTIVITAMIN (MULTIVITAMINS NOS) [Concomitant]
  20. MECLIZINE [Concomitant]
  21. TRAZODONE HCL [Concomitant]
  22. OXYCODONE HCL [Concomitant]

REACTIONS (12)
  - PYREXIA [None]
  - MULTIPLE SCLEROSIS RELAPSE [None]
  - CHILLS [None]
  - DIPLOPIA [None]
  - SEDATION [None]
  - FATIGUE [None]
  - GAIT DISTURBANCE [None]
  - PAIN [None]
  - NAUSEA [None]
  - VISION BLURRED [None]
  - BACK PAIN [None]
  - FALL [None]
